FAERS Safety Report 7376665 (Version 6)
Quarter: 2012Q4

REPORT INFORMATION
  Report Type: Report from Study
  Country: US (occurrence: US)
  Receive Date: 20100504
  Receipt Date: 20121212
  Transmission Date: 20130627
  Serious: Yes (Death, Congenital Anomaly, Other)
  Sender: FDA-Public Use
  Company Number: US-ABBOTT-10P-163-0640912-00

PATIENT

DRUGS (7)
  1. HUMIRA 40 MG/ 0.8 ML PRE-FILLED SYRINGE [Suspect]
     Indication: MATERNAL EXPOSURE TIMING UNSPECIFIED
     Route: 064
  2. LEXAPRO [Suspect]
     Indication: MATERNAL EXPOSURE TIMING UNSPECIFIED
     Route: 064
  3. TRAZODONE [Suspect]
     Indication: MATERNAL EXPOSURE TIMING UNSPECIFIED
     Route: 064
  4. ENBREL [Suspect]
     Indication: MATERNAL EXPOSURE TIMING UNSPECIFIED
     Route: 064
  5. MUCINEX [Suspect]
     Indication: MATERNAL EXPOSURE TIMING UNSPECIFIED
     Route: 064
  6. TUMS [Suspect]
     Indication: MATERNAL EXPOSURE TIMING UNSPECIFIED
     Route: 064
  7. TYLENOL [Suspect]
     Indication: MATERNAL EXPOSURE TIMING UNSPECIFIED
     Route: 064

REACTIONS (15)
  - Hydrocephalus [Fatal]
  - Congenital heart valve disorder [Fatal]
  - Tachypnoea [Fatal]
  - Cytogenetic abnormality [Fatal]
  - Hemivertebra [Fatal]
  - Cryptorchism [Fatal]
  - Kidney enlargement [Fatal]
  - Foetal exposure during pregnancy [Fatal]
  - Neurodegenerative disorder [Fatal]
  - Cerebrospinal fluid leakage [Fatal]
  - Anal stenosis [Fatal]
  - Atrial septal defect [Fatal]
  - Patent ductus arteriosus [Fatal]
  - Coarctation of the aorta [Fatal]
  - Macrocephaly [Fatal]
